FAERS Safety Report 4789844-4 (Version None)
Quarter: 2005Q4

REPORT INFORMATION
  Report Type: 
  Country: None (occurrence: None)
  Receive Date: 20051005
  Receipt Date: 20051005
  Transmission Date: 20060501
  Serious: Yes (Other)
  Sender: FDA-Public Use
  Company Number: None

PATIENT
  Age: 35 Year
  Sex: Female
  Weight: 68.0396 kg

DRUGS (2)
  1. CELEXA [Suspect]
     Indication: ANXIETY
     Dosage: 20MG   TWICE DAILY
     Dates: start: 20031120, end: 20040826
  2. CELEXA [Suspect]
     Indication: STRESS
     Dosage: 20MG   TWICE DAILY
     Dates: start: 20031120, end: 20040826

REACTIONS (7)
  - ANXIETY [None]
  - DISSOCIATIVE FUGUE [None]
  - HEADACHE [None]
  - INSOMNIA [None]
  - OVERDOSE [None]
  - PANIC ATTACK [None]
  - SUICIDE ATTEMPT [None]
